FAERS Safety Report 6714745-1 (Version None)
Quarter: 2010Q2

REPORT INFORMATION
  Report Type: 
  Country: None (occurrence: None)
  Receive Date: 20100507
  Receipt Date: 20100428
  Transmission Date: 20101027
  Serious: No
  Sender: FDA-Public Use
  Company Number: US-BIOGENIDEC-2010BI014661

PATIENT
  Age: 54 Year
  Sex: Female

DRUGS (4)
  1. TYSABRI [Suspect]
     Indication: MULTIPLE SCLEROSIS
     Route: 042
     Dates: start: 20070327, end: 20071106
  2. TYSABRI [Suspect]
     Route: 042
     Dates: start: 20080428
  3. BENADRYL [Concomitant]
     Indication: PREMEDICATION
     Dates: start: 20070101
  4. PREDNISONE [Concomitant]
     Indication: PREMEDICATION
     Dates: start: 20100201

REACTIONS (1)
  - HYPERSENSITIVITY [None]
